FAERS Safety Report 8303764-X (Version None)
Quarter: 2012Q2

REPORT INFORMATION
  Report Type: 
  Country: None (occurrence: None)
  Receive Date: 20120423
  Receipt Date: 20120409
  Transmission Date: 20120825
  Serious: Yes (Hospitalization)
  Sender: FDA-Public Use
  Company Number: PHHY2012FR033272

PATIENT
  Age: 45 Year
  Sex: Female

DRUGS (1)
  1. CARBAMAZEPINE [Suspect]
     Dosage: UNK UKN, UNK
     Route: 048

REACTIONS (6)
  - LOSS OF CONSCIOUSNESS [None]
  - UNRESPONSIVE TO STIMULI [None]
  - DRUG LEVEL INCREASED [None]
  - OVERDOSE [None]
  - RESPIRATORY DISTRESS [None]
  - TOXICITY TO VARIOUS AGENTS [None]
